FAERS Safety Report 9087014 (Version 2)
Quarter: 2013Q1

REPORT INFORMATION
  Report Type: Spontaneous
  Country: ZA (occurrence: ZA)
  Receive Date: 20130217
  Receipt Date: 20130328
  Transmission Date: 20140127
  Serious: Yes (Hospitalization, Other)
  Sender: FDA-Public Use
  Company Number: ZA-JNJFOC-20130204727

PATIENT
  Sex: Female
  Weight: 54 kg

DRUGS (1)
  1. REVELLEX [Suspect]
     Indication: COLITIS ULCERATIVE
     Route: 042
     Dates: start: 20120912

REACTIONS (11)
  - Weight decreased [Unknown]
  - Productive cough [Recovering/Resolving]
  - Pyrexia [Recovered/Resolved]
  - Tachycardia [Recovered/Resolved]
  - Diarrhoea [Recovering/Resolving]
  - Pneumonia [Recovered/Resolved]
  - Pulmonary mass [Unknown]
  - Haemoglobin decreased [Recovered/Resolved]
  - Fatigue [Recovered/Resolved]
  - Tremor [Recovered/Resolved]
  - Arthralgia [Not Recovered/Not Resolved]
